FAERS Safety Report 7671143-4 (Version None)
Quarter: 2011Q3

REPORT INFORMATION
  Report Type: 
  Country: None (occurrence: None)
  Receive Date: 20110803
  Receipt Date: 20110720
  Transmission Date: 20111222
  Serious: Yes (Other)
  Sender: FDA-Public Use
  Company Number: 2011MA009551

PATIENT
  Age: 61 Year
  Sex: Male

DRUGS (6)
  1. PROCYCLIDINE HYDROCHLORIDE 2MG TAB [Concomitant]
  2. FORTISIP [Concomitant]
  3. MIRTAZAPINE [Suspect]
     Indication: DEPRESSION
     Dosage: 15 MG; PO
     Route: 048
     Dates: end: 20110707
  4. FLUPENTIXOL [Concomitant]
  5. TAMSULOSIN HCL [Concomitant]
  6. MIRTAZAPINE [Suspect]
     Indication: DEPRESSION
     Dosage: 15 MG; PO
     Route: 048
     Dates: end: 20110707

REACTIONS (1)
  - LYMPHOCYTE COUNT DECREASED [None]
